FAERS Safety Report 10802658 (Version 4)
Quarter: 2015Q2

REPORT INFORMATION
  Report Type: Spontaneous
  Country: GR (occurrence: GR)
  Receive Date: 20150217
  Receipt Date: 20150413
  Transmission Date: 20150821
  Serious: Yes (Other)
  Sender: FDA-Public Use
  Company Number: GR-PFIZER INC-2015054890

PATIENT
  Sex: Female

DRUGS (2)
  1. NEURONTIN [Suspect]
     Active Substance: GABAPENTIN
     Dosage: 300 MG, UNK
  2. NEURONTIN [Suspect]
     Active Substance: GABAPENTIN
     Dosage: UNK
     Dates: start: 201502

REACTIONS (5)
  - Incorrect dose administered [Unknown]
  - Autoimmune disorder [Unknown]
  - Muscle twitching [Unknown]
  - Drug ineffective [Unknown]
  - Muscle contractions involuntary [Unknown]
